FAERS Safety Report 4898647-1 (Version None)
Quarter: 2006Q1

REPORT INFORMATION
  Report Type: 
  Country: None (occurrence: None)
  Receive Date: 20060202
  Receipt Date: 20051216
  Transmission Date: 20060701
  Serious: Yes (Hospitalization, Other)
  Sender: FDA-Public Use
  Company Number: DE-GILEAD-2005-0009035

PATIENT
  Sex: Male
  Weight: 60 kg

DRUGS (4)
  1. TRUVADA [Suspect]
     Indication: HIV INFECTION
     Route: 048
     Dates: start: 20051125
  2. KALETRA [Concomitant]
     Indication: HIV INFECTION
     Route: 048
     Dates: start: 20051125
  3. PENTACARINAT [Concomitant]
     Indication: PNEUMOCYSTIS JIROVECI PNEUMONIA
     Route: 042
  4. FLUCONAZOLE [Concomitant]
     Indication: OESOPHAGEAL CANDIDIASIS
     Route: 048
     Dates: start: 20051125

REACTIONS (15)
  - BLOOD PH INCREASED [None]
  - CHEST X-RAY ABNORMAL [None]
  - GASTRITIS [None]
  - HAEMANGIOMA OF LIVER [None]
  - IMMUNE RECONSTITUTION SYNDROME [None]
  - KAPOSI'S SARCOMA [None]
  - LUNG INFILTRATION [None]
  - LYMPHADENOPATHY [None]
  - OESOPHAGEAL DISORDER [None]
  - PLEURAL EFFUSION [None]
  - PNEUMOCYSTIS JIROVECI PNEUMONIA [None]
  - POLYNEUROPATHY [None]
  - POST HERPETIC NEURALGIA [None]
  - RASH [None]
  - THROMBOSIS [None]
